FAERS Safety Report 8534077-9 (Version None)
Quarter: 2012Q3

REPORT INFORMATION
  Report Type: 
  Country: None (occurrence: None)
  Receive Date: 20120724
  Receipt Date: 20120717
  Transmission Date: 20120928
  Serious: Yes (Other)
  Sender: FDA-Public Use
  Company Number: US-009507513-1207USA006113

PATIENT

DRUGS (5)
  1. PROTONIX [Concomitant]
  2. ASPIRIN [Concomitant]
  3. NEXPLANON [Suspect]
     Dosage: UNK
     Dates: start: 20090724
  4. PLAQUENIL [Concomitant]
  5. EFFEXOR [Concomitant]

REACTIONS (1)
  - SYSTEMIC LUPUS ERYTHEMATOSUS [None]
